FAERS Safety Report 5332850-1 (Version None)
Quarter: 2007Q2

REPORT INFORMATION
  Report Type: 
  Country: None (occurrence: None)
  Receive Date: 20070521
  Receipt Date: 20070503
  Transmission Date: 20071010
  Serious: Yes (Other)
  Sender: FDA-Public Use
  Company Number: DSA_29861_2007

PATIENT
  Age: 84 Year
  Sex: Male

DRUGS (3)
  1. ENALAPRIL MALEATE [Suspect]
     Dosage: 2.5 MG QD ORAL
     Route: 048
     Dates: start: 19900101, end: 20060101
  2. LATANOPROST [Concomitant]
  3. TIMOLOL MALEATE [Concomitant]

REACTIONS (2)
  - EYE INFLAMMATION [None]
  - VISUAL DISTURBANCE [None]
